FAERS Safety Report 7407110-5 (Version None)
Quarter: 2011Q2

REPORT INFORMATION
  Report Type: 
  Country: None (occurrence: None)
  Receive Date: 20110411
  Receipt Date: 20110401
  Transmission Date: 20111010
  Serious: Yes (Other)
  Sender: FDA-Public Use
  Company Number: CHPA2011US04829

PATIENT
  Sex: Female
  Weight: 158.73 kg

DRUGS (4)
  1. ACETAMINOPHEN [Concomitant]
     Indication: HEADACHE
     Dosage: 1 DF, PRN
     Route: 048
  2. NEOCITRAN EXTRA STRENGTH COLDS AND FLU [Suspect]
     Indication: PAIN
  3. NEOCITRAN EXTRA STRENGTH COLDS AND FLU [Suspect]
     Indication: NASAL CONGESTION
  4. NEOCITRAN EXTRA STRENGTH COLDS AND FLU [Suspect]
     Indication: PYREXIA
     Dosage: 1 PACK, PER DAY
     Route: 048
     Dates: start: 20110318, end: 20110319

REACTIONS (4)
  - HYPERSENSITIVITY [None]
  - PRURITUS [None]
  - RASH PAPULAR [None]
  - SCAR [None]
